FAERS Safety Report 9559929 (Version 3)
Quarter: 2014Q2

REPORT INFORMATION
  Report Type: Spontaneous
  Country: US (occurrence: None)
  Receive Date: 20130906
  Receipt Date: 20140604
  Transmission Date: 20141212
  Serious: Yes (Disabling, Other)
  Sender: FDA-Public Use
  Company Number: 163-POMAL-13074418

PATIENT
  Age: 56 Year
  Sex: Female
  Weight: 47.63 kg

DRUGS (23)
  1. POMALYST (POMALIDOMIDE) (4 MILLIGRAM, CAPSULES) [Suspect]
     Indication: PLASMA CELL MYELOMA
     Dosage: 4 MG, 21 IN 28 D, PO
     Route: 048
     Dates: start: 201306
  2. DEXAMETHASONE (DEXAMETHASONE) [Concomitant]
     Indication: PLASMA CELL MYELOMA
  3. ACYCLOVIR (ACICLOVIR) (ACICLOVIR) [Concomitant]
  4. ASPIRIN (ACETYLSALICYLIC ACID) (ENTERIC-COATED TABLET) [Concomitant]
  5. BACITRACIN [Concomitant]
  6. BACTRIM DS (BACTRIM) [Concomitant]
  7. BIOTIN [Concomitant]
  8. CALCIUM + VIT D [Concomitant]
  9. CLARITIN (LORATADINE) [Concomitant]
  10. CLOTRIMAZOLE [Concomitant]
  11. CLOTRIMAZOLE [Concomitant]
  12. KRILL OIL (FISH OIL) [Concomitant]
  13. LIDOCAINE-PRILOCAINE (EMLAPATCH) [Concomitant]
  14. LOPERAMIDE HCL (LOPERAMIDE HYDROCHLORIDE) [Concomitant]
  15. OXYCONTIN (OXYCODONE HYDROCHLORIDE) [Concomitant]
  16. POTASSIUM CITRATE [Concomitant]
  17. PRILOSEC (OMEPRAZOLE) [Concomitant]
  18. SERTRALINE HCL (SERTRALINE HYDROCHLORIDE) [Concomitant]
  19. VITAMIN B6 (PYRIDOXINE HYDROCHLORIDE) [Concomitant]
  20. VITAMIN B12 (CYANOCOBALAMIN) [Concomitant]
  21. VITAMIN C (ASCORBIC ACID) [Concomitant]
  22. VITAMIN D (ERGOCALCIFEROL) [Concomitant]
  23. CYTOXAN (CYCLOPHOSPHAMIDE) [Concomitant]

REACTIONS (3)
  - Neutrophil count decreased [None]
  - White blood cell count decreased [None]
  - Plasma cell myeloma [None]
